FAERS Safety Report 6219648-7 (Version None)
Quarter: 2009Q2

REPORT INFORMATION
  Report Type: 
  Country: None (occurrence: None)
  Receive Date: 20090609
  Receipt Date: 20090601
  Transmission Date: 20091009
  Serious: Yes (Other)
  Sender: FDA-Public Use
  Company Number: PL-BAYER-200919215GPV

PATIENT
  Sex: Male

DRUGS (1)
  1. CIPROBAY [Suspect]
     Indication: DRUG USE FOR UNKNOWN INDICATION
     Route: 048
     Dates: start: 20090401

REACTIONS (2)
  - DIARRHOEA [None]
  - INTESTINAL HAEMORRHAGE [None]
